FAERS Safety Report 16409990 (Version 1)
Quarter: 2019Q2

REPORT INFORMATION
  Report Type: Spontaneous
  Country: US (occurrence: US)
  Receive Date: 20190610
  Receipt Date: 20190610
  Transmission Date: 20190711
  Serious: No
  Sender: FDA-Public Use
  Company Number: US-GLAXOSMITHKLINE-US2019102598

PATIENT
  Age: 86 Year
  Sex: Female

DRUGS (1)
  1. LAMICTAL [Suspect]
     Active Substance: LAMOTRIGINE
     Indication: SEIZURE
     Dosage: 50 MG, BID
     Route: 048

REACTIONS (4)
  - Hypoaesthesia oral [Unknown]
  - Wrong technique in product usage process [Unknown]
  - Hypoaesthesia [Not Recovered/Not Resolved]
  - Intranasal hypoaesthesia [Unknown]

NARRATIVE: CASE EVENT DATE: 20190425
